FAERS Safety Report 6789100-9 (Version None)
Quarter: 2010Q2

REPORT INFORMATION
  Report Type: 
  Country: None (occurrence: None)
  Receive Date: 20100623
  Receipt Date: 20080818
  Transmission Date: 20101027
  Serious: No
  Sender: FDA-Public Use
  Company Number: US-PFIZER INC-2008032983

PATIENT
  Sex: Female
  Weight: 62.6 kg

DRUGS (1)
  1. SUTENT [Suspect]
     Indication: RENAL CANCER

REACTIONS (8)
  - DIARRHOEA [None]
  - DYSGEUSIA [None]
  - EYE OEDEMA [None]
  - FATIGUE [None]
  - HEADACHE [None]
  - LACRIMATION INCREASED [None]
  - NAUSEA [None]
  - SKIN CHAPPED [None]
